FAERS Safety Report 5217845-0 (Version None)
Quarter: 2007Q1

REPORT INFORMATION
  Report Type: 
  Country: None (occurrence: None)
  Receive Date: 20070124
  Receipt Date: 20070118
  Transmission Date: 20070707
  Serious: Yes (Other)
  Sender: FDA-Public Use
  Company Number: DE-SHR-DE-2006-041107

PATIENT
  Sex: Female

DRUGS (1)
  1. MIRENA [Suspect]
     Dosage: 20 A?G/DAY, CONT
     Route: 015
     Dates: start: 20060201, end: 20061110

REACTIONS (5)
  - ASTHENIA [None]
  - IMMUNE SYSTEM DISORDER [None]
  - NASOPHARYNGITIS [None]
  - PNEUMONIA [None]
  - VIRAL INFECTION [None]
